FAERS Safety Report 10643691 (Version 1)
Quarter: 2014Q4

REPORT INFORMATION
  Report Type: Spontaneous
  Country: None (occurrence: US)
  Receive Date: 20141210
  Receipt Date: 20141210
  Transmission Date: 20150529
  Serious: No
  Sender: FDA-Public Use
  Company Number: US-NOVEN-14US009259

PATIENT
  Sex: Male

DRUGS (1)
  1. FENTANYL. [Suspect]
     Active Substance: FENTANYL
     Indication: PAIN
     Dosage: 100 UG/HR, UNK
     Route: 062

REACTIONS (4)
  - Drug withdrawal syndrome [Unknown]
  - Product quality issue [Unknown]
  - Inadequate analgesia [Unknown]
  - Drug effect delayed [Unknown]
